FAERS Safety Report 6792932-4 (Version None)
Quarter: 2010Q2

REPORT INFORMATION
  Report Type: 
  Country: None (occurrence: None)
  Receive Date: 20100624
  Receipt Date: 20081015
  Transmission Date: 20101027
  Serious: No
  Sender: FDA-Public Use
  Company Number: US-PFIZER INC-2008086835

PATIENT
  Sex: Female
  Weight: 83.181 kg

DRUGS (3)
  1. XALATAN [Suspect]
     Indication: GLAUCOMA
     Dates: start: 20080301
  2. XALATAN [Suspect]
     Indication: CATARACT
  3. GLIPIZIDE [Concomitant]

REACTIONS (1)
  - EYE IRRITATION [None]
